FAERS Safety Report 21308975 (Version 1)
Quarter: 2022Q3

REPORT INFORMATION
  Report Type: Spontaneous
  Country: JP (occurrence: JP)
  Receive Date: 20220908
  Receipt Date: 20220908
  Transmission Date: 20221027
  Serious: Yes (Death, Other)
  Sender: FDA-Public Use
  Company Number: JP-PFIZER INC-202101409814

PATIENT
  Age: 62 Year
  Sex: Male
  Weight: 67.9 kg

DRUGS (7)
  1. LORLATINIB [Suspect]
     Active Substance: LORLATINIB
     Dosage: 100 MG, DAILY
     Dates: start: 20210825, end: 20210826
  2. LORLATINIB [Suspect]
     Active Substance: LORLATINIB
     Dosage: 25 MG, DAILY
     Dates: start: 20210915, end: 20210926
  3. LORLATINIB [Suspect]
     Active Substance: LORLATINIB
     Dosage: 50 MG, DAILY
     Dates: start: 20210927, end: 20211003
  4. LORLATINIB [Suspect]
     Active Substance: LORLATINIB
     Dosage: 75 MG, DAILY
     Dates: start: 20211004, end: 20211008
  5. LORLATINIB [Suspect]
     Active Substance: LORLATINIB
     Dosage: 75 MG, DAILY
     Dates: start: 20211018, end: 20211024
  6. LORLATINIB [Suspect]
     Active Substance: LORLATINIB
     Dosage: 100 MG, DAILY
     Dates: start: 20211025, end: 20211210
  7. VFEND [Suspect]
     Active Substance: VORICONAZOLE
     Dosage: 600 MG
     Route: 042
     Dates: start: 20210813

REACTIONS (3)
  - Neoplasm progression [Fatal]
  - Acute kidney injury [Unknown]
  - Eosinophil count increased [Unknown]
